FAERS Safety Report 5653826-0 (Version None)
Quarter: 2008Q1

REPORT INFORMATION
  Report Type: 
  Country: None (occurrence: None)
  Receive Date: 20080306
  Receipt Date: 20080303
  Transmission Date: 20080703
  Serious: Yes (Life-Threatening, Hospitalization)
  Sender: FDA-Public Use
  Company Number: BR-ASTRAZENECA-2007UW26365

PATIENT
  Sex: Female
  Weight: 105 kg

DRUGS (12)
  1. SELOZOK [Suspect]
     Indication: HYPERTENSION
     Route: 048
     Dates: end: 20070501
  2. SELOZOK [Suspect]
     Route: 048
     Dates: start: 20070501
  3. AMIODARONE HCL [Concomitant]
     Indication: HYPERTENSION
  4. CAPTOPRIL [Concomitant]
     Indication: HYPERTENSION
  5. AMILODOPINA [Concomitant]
  6. PRAVASTATINA [Concomitant]
     Indication: HYPERCHOLESTEROLAEMIA
  7. ASPIRIN [Concomitant]
  8. FUROSEMIDE [Concomitant]
  9. ACETAMINOPHEN [Concomitant]
  10. DEPAQUENE [Concomitant]
  11. SELOKEN [Concomitant]
  12. DIUREMIDA [Concomitant]

REACTIONS (4)
  - ABDOMINAL PAIN [None]
  - CHOLELITHIASIS [None]
  - MYOCARDIAL INFARCTION [None]
  - SYNCOPE [None]
